FAERS Safety Report 5264350-1 (Version None)
Quarter: 2007Q1

REPORT INFORMATION
  Report Type: 
  Country: None (occurrence: None)
  Receive Date: 20070309
  Receipt Date: 20070226
  Transmission Date: 20070707
  Serious: No
  Sender: FDA-Public Use
  Company Number: 2007-155117-NL

PATIENT
  Sex: 0

DRUGS (1)
  1. VECURONIUM BROMIDE [Suspect]

REACTIONS (1)
  - PARALYSIS [None]
